FAERS Safety Report 5200989-7 (Version None)
Quarter: 2007Q1

REPORT INFORMATION
  Report Type: 
  Country: None (occurrence: None)
  Receive Date: 20070108
  Receipt Date: 20070104
  Transmission Date: 20070707
  Serious: Yes (Other)
  Sender: FDA-Public Use
  Company Number: US-GLAXOSMITHKLINE-A0634369A

PATIENT
  Age: 19 Year
  Sex: Female

DRUGS (11)
  1. EPIVIR [Suspect]
     Indication: HIV INFECTION
     Dosage: 300MG PER DAY
     Route: 048
     Dates: start: 20060605
  2. RETROVIR [Suspect]
     Indication: HIV INFECTION
     Dosage: 1MGKH PER DAY
     Route: 042
     Dates: start: 20061024, end: 20061024
  3. ZIDOVUDINE [Suspect]
     Indication: HIV INFECTION
     Dosage: 600MG PER DAY
     Route: 048
     Dates: start: 20060605
  4. KALETRA [Concomitant]
     Dosage: 10ML PER DAY
     Route: 048
     Dates: start: 20060627
  5. VIRACEPT [Concomitant]
     Dosage: 2500MG PER DAY
     Route: 048
     Dates: start: 20060605
  6. TRIMETHOPRIM + SULFAMETHOXAZOLE [Concomitant]
  7. MACROBID [Concomitant]
  8. CLOTRIMAZOLE TROCHES [Concomitant]
  9. REGLAN [Concomitant]
  10. PROMETHAZINE [Concomitant]
  11. CEFAZOLIN [Concomitant]

REACTIONS (3)
  - ANAEMIA [None]
  - DRUG EXPOSURE DURING PREGNANCY [None]
  - PREMATURE BABY [None]
